FAERS Safety Report 15113672 (Version 2)
Quarter: 2018Q3

REPORT INFORMATION
  Report Type: Report from Study
  Country: IT (occurrence: IT)
  Receive Date: 20180706
  Receipt Date: 20180806
  Transmission Date: 20181010
  Serious: Yes (Hospitalization)
  Sender: FDA-Public Use
  Company Number: IT-TEVA-2018-IT-859928

PATIENT
  Age: 59 Year
  Sex: Male
  Weight: 54 kg

DRUGS (8)
  1. PACLITAXEL. [Suspect]
     Active Substance: PACLITAXEL
     Indication: ADENOCARCINOMA GASTRIC
     Dosage: UNK, CYCLICAL
     Route: 065
     Dates: start: 20170508, end: 20170717
  2. CYRAMZA [Suspect]
     Active Substance: RAMUCIRUMAB
     Indication: GASTRIC CANCER
     Dates: start: 20170508, end: 20170717
  3. RAMUCIRUMAB [Suspect]
     Active Substance: RAMUCIRUMAB
     Indication: GASTRIC CANCER
     Route: 042
     Dates: start: 20170508, end: 20170717
  4. NALOXONE HCL [Concomitant]
     Active Substance: NALOXONE HYDROCHLORIDE
     Indication: MALIGNANT PERITONEAL NEOPLASM
     Route: 065
     Dates: start: 201704
  5. FUROSEMIDE. [Concomitant]
     Active Substance: FUROSEMIDE
     Indication: MALIGNANT PERITONEAL NEOPLASM
     Dates: start: 201704
  6. CANRENONE [Concomitant]
     Active Substance: CANRENONE
     Indication: MALIGNANT PERITONEAL NEOPLASM
     Route: 065
     Dates: start: 201704
  7. ESOMEPRAZOLE [Concomitant]
     Active Substance: ESOMEPRAZOLE
     Indication: MALIGNANT PERITONEAL NEOPLASM
     Dates: start: 201704
  8. DOMPERIDONE [Concomitant]
     Active Substance: DOMPERIDONE
     Indication: MALIGNANT PERITONEAL NEOPLASM
     Route: 065
     Dates: start: 201704

REACTIONS (2)
  - Abdominal pain upper [Unknown]
  - Pulmonary embolism [Recovered/Resolved with Sequelae]

NARRATIVE: CASE EVENT DATE: 20170801
